FAERS Safety Report 5494073-5 (Version None)
Quarter: 2007Q4

REPORT INFORMATION
  Report Type: 
  Country: None (occurrence: None)
  Receive Date: 20071022
  Receipt Date: 20071008
  Transmission Date: 20080405
  Serious: Yes (Other)
  Sender: FDA-Public Use
  Company Number: A0686615A

PATIENT
  Age: 35 Year
  Sex: Male

DRUGS (1)
  1. HYDROGEN PEROXIDE SOLUTION [Suspect]
     Indication: DRUG USE FOR UNKNOWN INDICATION
     Dosage: DENTAL
     Route: 004

REACTIONS (2)
  - CHOKING [None]
  - PHARMACEUTICAL PRODUCT COMPLAINT [None]
